FAERS Safety Report 21867114 (Version 3)
Quarter: 2023Q4

REPORT INFORMATION
  Report Type: Report from Study
  Country: US (occurrence: US)
  Receive Date: 20230116
  Receipt Date: 20231226
  Transmission Date: 20240110
  Serious: Yes (Other)
  Sender: FDA-Public Use
  Company Number: US-002147023-NVSC2023US006713

PATIENT
  Sex: Male

DRUGS (1)
  1. KESIMPTA [Suspect]
     Active Substance: OFATUMUMAB
     Indication: Product used for unknown indication
     Dosage: 20 MG, QMO
     Route: 050

REACTIONS (9)
  - Fatigue [Unknown]
  - Pain in extremity [Unknown]
  - Visual impairment [Unknown]
  - Throat tightness [Unknown]
  - Hypophagia [Unknown]
  - Mobility decreased [Unknown]
  - Product dose omission issue [Unknown]
  - Condition aggravated [Unknown]
  - Malaise [Unknown]
